FAERS Safety Report 13612064 (Version 1)
Quarter: 2017Q2

REPORT INFORMATION
  Report Type: Spontaneous
  Country: US (occurrence: US)
  Receive Date: 20170605
  Receipt Date: 20170605
  Transmission Date: 20170830
  Serious: No
  Sender: FDA-Public Use
  Company Number: None

PATIENT
  Age: 53 Year
  Sex: Female

DRUGS (10)
  1. TYLENOL/CODEINE #4 [Concomitant]
  2. LEVEMIR [Concomitant]
     Active Substance: INSULIN DETEMIR
  3. TIZANIDINE. [Concomitant]
     Active Substance: TIZANIDINE
  4. COPAXONE [Suspect]
     Active Substance: GLATIRAMER ACETATE
  5. AMITRIPTYLINE [Concomitant]
     Active Substance: AMITRIPTYLINE
  6. GABAPENTIN. [Concomitant]
     Active Substance: GABAPENTIN
  7. LEVOXYL [Concomitant]
     Active Substance: LEVOTHYROXINE SODIUM
  8. VICODIN [Concomitant]
     Active Substance: ACETAMINOPHEN\HYDROCODONE BITARTRATE
  9. XANAX [Concomitant]
     Active Substance: ALPRAZOLAM
  10. CELEXA [Concomitant]
     Active Substance: CITALOPRAM HYDROBROMIDE

REACTIONS (2)
  - Injection site nodule [None]
  - Injection site reaction [None]

NARRATIVE: CASE EVENT DATE: 20170605
